FAERS Safety Report 8704770 (Version 2)
Quarter: 2013Q1

REPORT INFORMATION
  Report Type: Spontaneous
  Country: BR (occurrence: BR)
  Receive Date: 20120803
  Receipt Date: 20130214
  Transmission Date: 20140127
  Serious: Yes (Other)
  Sender: FDA-Public Use
  Company Number: BR-ASTRAZENECA-2012SE53111

PATIENT
  Age: 32 Year
  Sex: Female

DRUGS (8)
  1. OMEPRAZOLE [Suspect]
     Indication: GASTROOESOPHAGEAL REFLUX DISEASE
     Route: 048
     Dates: start: 201006, end: 201207
  2. OMEPRAZOLE [Suspect]
     Indication: GASTRITIS
     Route: 048
     Dates: start: 201006, end: 201207
  3. NEXIUM [Suspect]
     Indication: GASTROOESOPHAGEAL REFLUX DISEASE
     Route: 048
     Dates: start: 201207
  4. NEXIUM [Suspect]
     Indication: GASTRITIS
     Route: 048
     Dates: start: 201207
  5. IRON [Suspect]
     Indication: PREGNANCY
     Dosage: OD
     Route: 065
     Dates: start: 201207, end: 201301
  6. FOLIC ACID [Concomitant]
     Indication: PREGNANCY
     Route: 048
     Dates: start: 201207, end: 201301
  7. CALCIUM [Concomitant]
     Indication: PREGNANCY
     Route: 048
     Dates: start: 201207, end: 201301
  8. MECLIN [Concomitant]
     Indication: PROPHYLAXIS OF NAUSEA AND VOMITING
     Route: 048
     Dates: start: 201207, end: 201301

REACTIONS (3)
  - Exposure during pregnancy [Unknown]
  - Complication of pregnancy [Recovered/Resolved]
  - Anaemia [Not Recovered/Not Resolved]
